FAERS Safety Report 6422224-4 (Version None)
Quarter: 2009Q4

REPORT INFORMATION
  Report Type: 
  Country: None (occurrence: None)
  Receive Date: 20091030
  Receipt Date: 20091027
  Transmission Date: 20100525
  Serious: Yes (Death, Hospitalization, Other)
  Sender: FDA-Public Use
  Company Number: PHEH2007US12177

PATIENT
  Sex: Male
  Weight: 113.38 kg

DRUGS (25)
  1. ZOMETA [Suspect]
     Indication: MULTIPLE MYELOMA
     Dosage: 4MG ONCE A MONTH
     Route: 042
  2. ANTINEOPLASTIC AGENTS [Concomitant]
     Dosage: UNK
     Dates: end: 20060101
  3. AMOXICILLIN [Concomitant]
     Dosage: 500 MG, UNK
     Dates: start: 20071101
  4. VICODIN ES [Concomitant]
     Dosage: UNK
     Dates: start: 20070101
  5. THALIDOMIDE [Concomitant]
     Dosage: 200 MG, QD
     Dates: start: 20050101
  6. DEXAMETHASONE [Concomitant]
     Dosage: 40 MG, UNK
     Route: 048
     Dates: start: 20050101
  7. LOVENOX [Concomitant]
     Dosage: 40 MG, QD
  8. CHLORHEXIDINE GLUCONATE [Concomitant]
     Dosage: 0.12%
     Dates: start: 20061214
  9. PEN-VEE K [Concomitant]
     Dosage: 500 MG
     Dates: start: 20000401
  10. VICODIN [Concomitant]
     Dosage: UNK
     Dates: start: 20061214
  11. HYDROCODONE [Concomitant]
  12. IBUPROFEN [Concomitant]
  13. HERBAL EXTRACTS NOS [Concomitant]
  14. WARFARIN SODIUM [Concomitant]
     Dosage: UNK
     Dates: start: 20060801
  15. AMICAR [Concomitant]
     Dosage: UNK
     Dates: start: 20070101
  16. HYDROCODONE BITARTRATE AND ACETAMINOPHEN [Concomitant]
  17. METRONIDAZOLE [Concomitant]
     Dosage: UNK
     Dates: start: 20070901
  18. TYLENOL [Concomitant]
     Route: 048
  19. LEVAQUIN [Concomitant]
     Route: 042
  20. VELCADE [Concomitant]
     Dosage: UNK DOSE TWICE A WEEK
     Route: 042
  21. MULTI-VITAMINS [Concomitant]
  22. AMPICILLIN [Concomitant]
  23. PEPCID [Concomitant]
  24. REGLAN [Concomitant]
  25. GENTAMYCIN-MP [Concomitant]

REACTIONS (64)
  - ABSCESS JAW [None]
  - ANAEMIA [None]
  - ANHEDONIA [None]
  - ANXIETY [None]
  - AORTIC ARTERIOSCLEROSIS [None]
  - ARTHRALGIA [None]
  - ASPIRATION [None]
  - ATELECTASIS [None]
  - BACK DISORDER [None]
  - BENIGN PROSTATIC HYPERPLASIA [None]
  - BONE DISORDER [None]
  - BONE LESION [None]
  - CALCULUS URETHRAL [None]
  - CARDIOMEGALY [None]
  - CHEST X-RAY ABNORMAL [None]
  - CORONARY ARTERY DISEASE [None]
  - COUGH [None]
  - DEFORMITY [None]
  - DENTAL ALVEOLAR ANOMALY [None]
  - DENTAL CARE [None]
  - DISCOMFORT [None]
  - EMOTIONAL DISTRESS [None]
  - EMPHYSEMA [None]
  - GAMMOPATHY [None]
  - GINGIVAL ULCERATION [None]
  - HAEMATURIA [None]
  - HAEMOPTYSIS [None]
  - HIP ARTHROPLASTY [None]
  - HYDRONEPHROSIS [None]
  - HYPOPHAGIA [None]
  - INJURY [None]
  - INTERVERTEBRAL DISC PROTRUSION [None]
  - LEFT ATRIAL DILATATION [None]
  - LIFE EXPECTANCY SHORTENED [None]
  - LITHOTRIPSY [None]
  - LOOSE TOOTH [None]
  - LUNG NEOPLASM MALIGNANT [None]
  - LYMPHADENOPATHY [None]
  - MULTIPLE MYELOMA [None]
  - MYOCARDIAL INFARCTION [None]
  - NEPHROLITHIASIS [None]
  - OEDEMA PERIPHERAL [None]
  - ORAL CAVITY FISTULA [None]
  - OSTEOARTHRITIS [None]
  - OSTEONECROSIS [None]
  - OSTEOPENIA [None]
  - OSTEOPOROSIS [None]
  - PAIN [None]
  - PAPILLOMA [None]
  - PERIODONTAL DISEASE [None]
  - PERIODONTITIS [None]
  - PNEUMOCONIOSIS [None]
  - PRIMARY SEQUESTRUM [None]
  - PULMONARY HAEMORRHAGE [None]
  - PYREXIA [None]
  - RASH [None]
  - SPINAL OSTEOARTHRITIS [None]
  - TOOTH EXTRACTION [None]
  - TOOTH REPAIR [None]
  - TOTAL LUNG CAPACITY DECREASED [None]
  - TUMOUR INVASION [None]
  - URETERAL STENT INSERTION [None]
  - VENTRICULAR HYPERTROPHY [None]
  - WEIGHT DECREASED [None]
